FAERS Safety Report 6610385-3 (Version None)
Quarter: 2010Q1

REPORT INFORMATION
  Report Type: 
  Country: None (occurrence: None)
  Receive Date: 20100302
  Receipt Date: 20100218
  Transmission Date: 20100710
  Serious: Yes (Hospitalization, Other)
  Sender: FDA-Public Use
  Company Number: JP-PFIZER INC-2009241918

PATIENT
  Age: 62 Year
  Sex: Male
  Weight: 59.3 kg

DRUGS (9)
  1. SUNITINIB MALATE [Suspect]
     Indication: RENAL CELL CARCINOMA
     Dosage: 50 MG, 1X/DAY
     Route: 048
     Dates: start: 20090630
  2. HARNAL [Concomitant]
     Route: 048
  3. ALLOPURINOL [Concomitant]
     Dosage: UNK
     Route: 048
  4. PURSENNID [Concomitant]
     Route: 048
  5. NEO-LOTAN [Concomitant]
     Route: 048
  6. EPADEL [Concomitant]
     Route: 048
  7. ALESION [Concomitant]
     Route: 048
  8. THYRADIN S [Concomitant]
     Route: 048
  9. PARIET [Concomitant]
     Dosage: UNK
     Route: 048
     Dates: start: 20090709

REACTIONS (6)
  - BLOOD CREATININE INCREASED [None]
  - HYPONATRAEMIA [None]
  - LYMPHOCYTE COUNT DECREASED [None]
  - NEUTROPENIC INFECTION [None]
  - NEUTROPHIL COUNT DECREASED [None]
  - PLATELET COUNT DECREASED [None]
